FAERS Safety Report 6913066-1 (Version None)
Quarter: 2010Q3

REPORT INFORMATION
  Report Type: 
  Country: None (occurrence: None)
  Receive Date: 20100806
  Receipt Date: 20090630
  Transmission Date: 20110219
  Serious: No
  Sender: FDA-Public Use
  Company Number: US-PFIZER INC-2009236452

PATIENT
  Sex: Male
  Weight: 81.6 kg

DRUGS (2)
  1. DETROL [Suspect]
     Indication: PROSTATOMEGALY
     Dosage: 4 MG, 1X/DAY
     Route: 048
     Dates: start: 20090601
  2. TAMSULOSIN HYDROCHLORIDE [Concomitant]
     Indication: PROSTATIC DISORDER
     Dosage: UNK
     Route: 048

REACTIONS (1)
  - CONSTIPATION [None]
